FAERS Safety Report 9566758 (Version 1)
Quarter: 2013Q3

REPORT INFORMATION
  Report Type: Spontaneous
  Country: US (occurrence: US)
  Receive Date: 20130930
  Receipt Date: 20130930
  Transmission Date: 20140515
  Serious: No
  Sender: FDA-Public Use
  Company Number: US-AMGEN-USASP2012061459

PATIENT
  Sex: Female
  Weight: 48.98 kg

DRUGS (7)
  1. ENBREL [Suspect]
     Indication: PRODUCT USED FOR UNKNOWN INDICATION
     Dosage: 50 MG, QWK
     Route: 058
  2. LOESTRIN [Concomitant]
     Dosage: UNK
  3. MULTIVITAMINS, PLAIN [Concomitant]
     Dosage: UNK
  4. ALLEGRA ALLERGY [Concomitant]
     Dosage: 30 MG, UNK
  5. NAPROXEN SODIUM [Concomitant]
     Dosage: 550 MG, UNK
  6. FOLIC ACID [Concomitant]
     Dosage: UNK
  7. METHOTREXATE [Concomitant]
     Dosage: 2.5 MG, UNK

REACTIONS (1)
  - Condition aggravated [Unknown]
